FAERS Safety Report 24809983 (Version 1)
Quarter: 2025Q1

REPORT INFORMATION
  Report Type: Spontaneous
  Country: US (occurrence: None)
  Receive Date: 20250104
  Receipt Date: 20250104
  Transmission Date: 20250408
  Serious: No
  Sender: FDA-CTU
  Company Number: None

PATIENT
  Sex: Female

DRUGS (11)
  1. COPAXONE [Suspect]
     Active Substance: GLATIRAMER ACETATE
     Indication: Multiple sclerosis
     Route: 058
     Dates: start: 20180515
  2. BACTRIM [Concomitant]
     Active Substance: SULFAMETHOXAZOLE\TRIMETHOPRIM
  3. COENZYME Q10 [Concomitant]
     Active Substance: DIETARY SUPPLEMENT\UBIDECARENONE
  4. CRANBERRY [Concomitant]
     Active Substance: CRANBERRY
  5. DIAZEPAM [Concomitant]
     Active Substance: DIAZEPAM
  6. DICYCLOMINE [Concomitant]
     Active Substance: DICYCLOMINE HYDROCHLORIDE
  7. ENZYMATIC [Concomitant]
  8. GENTAMICIN SOL [Concomitant]
  9. N-ACETYL-L- CAP CYSTEINE [Concomitant]
  10. PRIMROSE OIL CAP GRANBERR [Concomitant]
  11. VITAMIN B-2 [Concomitant]

REACTIONS (3)
  - Mobility decreased [None]
  - Fall [None]
  - Balance disorder [None]
